FAERS Safety Report 4922613-0 (Version None)
Quarter: 2006Q1

REPORT INFORMATION
  Report Type: 
  Country: None (occurrence: None)
  Receive Date: 20060224
  Receipt Date: 20060216
  Transmission Date: 20060701
  Serious: Yes (Hospitalization)
  Sender: FDA-Public Use
  Company Number: PHRM2006FR00825

PATIENT
  Age: 7 Year
  Sex: Male

DRUGS (3)
  1. TRILEPTAL [Suspect]
     Dosage: 300 MG, BID
     Route: 048
     Dates: start: 20051005
  2. VALPROIC ACID [Suspect]
     Dosage: 300 AND 350 MG/DAY
     Route: 048
     Dates: end: 20060103
  3. LAMICTAL [Suspect]
     Dosage: 45 MG, BID
     Route: 048
     Dates: end: 20060103

REACTIONS (8)
  - ALANINE AMINOTRANSFERASE INCREASED [None]
  - AMMONIA INCREASED [None]
  - ASPARTATE AMINOTRANSFERASE INCREASED [None]
  - ENCEPHALOPATHY [None]
  - HEPATIC FAILURE [None]
  - PROTHROMBIN LEVEL DECREASED [None]
  - RASH VESICULAR [None]
  - STATUS EPILEPTICUS [None]
